FAERS Safety Report 10252217 (Version 1)
Quarter: 2014Q2

REPORT INFORMATION
  Report Type: Spontaneous
  Country: US (occurrence: US)
  Receive Date: 20140623
  Receipt Date: 20140623
  Transmission Date: 20141212
  Serious: Yes (Hospitalization)
  Sender: FDA-Public Use
  Company Number: US-ABBVIE-14P-163-1249779-00

PATIENT
  Sex: Male
  Weight: 71.73 kg

DRUGS (5)
  1. ANDROGEL [Suspect]
     Indication: BLOOD TESTOSTERONE DECREASED
     Dosage: 2 PUMPS DAILY
     Route: 061
     Dates: end: 201301
  2. ANDROGEL [Suspect]
     Dosage: 4 PUMPS DAILY
     Route: 061
     Dates: start: 201301, end: 201302
  3. ANDROGEL [Suspect]
     Indication: BLOOD TESTOSTERONE DECREASED
     Route: 061
     Dates: start: 2009
  4. PREDNISONE [Concomitant]
     Indication: PRODUCT USED FOR UNKNOWN INDICATION
  5. CHLORTHALIDONE [Concomitant]
     Indication: HYPERTENSION
     Route: 048

REACTIONS (4)
  - Back pain [Unknown]
  - Neck pain [Recovered/Resolved]
  - Cerebrovascular accident [Recovered/Resolved]
  - Breast enlargement [Recovered/Resolved]
